FAERS Safety Report 4559334-2 (Version None)
Quarter: 2005Q1

REPORT INFORMATION
  Report Type: 
  Country: None (occurrence: None)
  Receive Date: 20050124
  Receipt Date: 20050114
  Transmission Date: 20050727
  Serious: Yes (Hospitalization)
  Sender: FDA-Public Use
  Company Number: PHFR2005GB00574

PATIENT
  Sex: Female

DRUGS (1)
  1. CLOZARIL [Suspect]
     Indication: MEDICATION ERROR
     Dosage: 225 MG OVERDOSE
     Route: 048
     Dates: start: 20050113

REACTIONS (4)
  - ACCIDENTAL EXPOSURE [None]
  - CONFUSIONAL STATE [None]
  - SALIVARY HYPERSECRETION [None]
  - SOMNOLENCE [None]
